FAERS Safety Report 25952490 (Version 6)
Quarter: 2025Q4

REPORT INFORMATION
  Report Type: Spontaneous
  Country: EU (occurrence: EU)
  Receive Date: 20251023
  Receipt Date: 20251231
  Transmission Date: 20260118
  Serious: Yes (Death, Life-Threatening, Hospitalization, Other)
  Sender: PFIZER
  Company Number: EU-ELI_LILLY_AND_COMPANY-IT202510004475

PATIENT
  Age: 72 Year
  Sex: Male
  Weight: 92 kg

DRUGS (16)
  1. CARBOPLATIN [Suspect]
     Active Substance: CARBOPLATIN
     Indication: Non-small cell lung cancer
     Dosage: 380 MG, CYCLIC (CYCLICAL)
     Route: 042
     Dates: start: 20250924, end: 202509
  2. PEMETREXED [Suspect]
     Active Substance: PEMETREXED
     Indication: Non-small cell lung cancer
     Dosage: 500 MG/M2, CYCLIC (CYCLICAL)
     Route: 042
     Dates: start: 20250924, end: 202509
  3. PEMBROLIZUMAB [Suspect]
     Active Substance: PEMBROLIZUMAB
     Indication: Non-small cell lung cancer
     Dosage: 200 MG, CYCLIC (CYCLICAL)
     Route: 042
     Dates: start: 20250924, end: 202509
  4. CANDESARTAN CILEXETIL [Concomitant]
     Active Substance: CANDESARTAN CILEXETIL
     Indication: Hypertrophy
     Dosage: UNK
     Dates: start: 201710
  5. ALFUZOSIN [Concomitant]
     Active Substance: ALFUZOSIN
     Indication: Hypertrophy
     Dosage: UNK
     Dates: start: 202406
  6. ACETAMINOPHEN [Concomitant]
     Active Substance: ACETAMINOPHEN
     Indication: Prophylaxis
     Dosage: UNK
     Dates: start: 20250827
  7. NALOXONE HYDROCHLORIDE\OXYCODONE HYDROCHLORIDE [Concomitant]
     Active Substance: NALOXONE HYDROCHLORIDE\OXYCODONE HYDROCHLORIDE
     Indication: Prophylaxis
     Dosage: UNK
     Dates: start: 20250827
  8. FILGRASTIM [Concomitant]
     Active Substance: FILGRASTIM
     Indication: Non-small cell lung cancer
     Dosage: UNK
     Dates: start: 20250925
  9. SODIUM CHLORIDE [Concomitant]
     Active Substance: SODIUM CHLORIDE
     Indication: Non-small cell lung cancer
     Dosage: UNK
     Dates: start: 20250924
  10. FENTANYL CITRATE [Concomitant]
     Active Substance: FENTANYL CITRATE
     Indication: Prophylaxis
     Dosage: UNK
     Dates: start: 20250923
  11. DEXAMETHASONE SODIUM PHOSPHATE [Concomitant]
     Active Substance: DEXAMETHASONE SODIUM PHOSPHATE
     Indication: Non-small cell lung cancer
     Dosage: UNK
     Dates: start: 20250827
  12. FOLIC ACID [Concomitant]
     Active Substance: FOLIC ACID
     Indication: Non-small cell lung cancer
     Dosage: UNK
     Dates: start: 20250827
  13. AKYNZEO [FOSNETUPITANT CHLORIDE HYDROCHLORIDE;PALONOSETRON HYDROCHLORI [Concomitant]
     Indication: Non-small cell lung cancer
     Dosage: 300 MG
     Route: 048
     Dates: start: 20250924
  14. MEGACORT [DEXAMETHASONE SODIUM PHOSPHATE] [Concomitant]
     Indication: Prophylaxis
     Dosage: 4 MG
     Route: 042
     Dates: start: 20250924, end: 20250924
  15. OMEPRAZOLE [Concomitant]
     Active Substance: OMEPRAZOLE
     Indication: Prophylaxis
     Dosage: 40 MG
     Route: 042
     Dates: start: 20250924, end: 20250924
  16. TRIMETON [Concomitant]
     Active Substance: CHLORPHENIRAMINE MALEATE
     Indication: Prophylaxis
     Dosage: 10 MG
     Route: 042
     Dates: start: 20250924, end: 20250924

REACTIONS (4)
  - Febrile neutropenia [Fatal]
  - Hyponatraemia [Fatal]
  - Neutropenia [Fatal]
  - Blood creatinine increased [Fatal]

NARRATIVE: CASE EVENT DATE: 20250930
